FAERS Safety Report 8025136-8 (Version None)
Quarter: 2012Q1

REPORT INFORMATION
  Report Type: 
  Country: None (occurrence: None)
  Receive Date: 20120105
  Receipt Date: 20111223
  Transmission Date: 20120608
  Serious: Yes (Hospitalization)
  Sender: FDA-Public Use
  Company Number: DK-SANOFI-AVENTIS-2011SA084817

PATIENT
  Age: 66 Year
  Sex: Female
  Weight: 60 kg

DRUGS (15)
  1. LENALIDOMIDE [Suspect]
     Indication: MULTIPLE MYELOMA
     Dosage: 25 MILLIGRAM
     Route: 048
     Dates: start: 20111031, end: 20111121
  2. ALL OTHER THERAPEUTIC PRODUCTS [Concomitant]
     Dosage: 800 MILLIGRAM
     Route: 048
     Dates: start: 20110524
  3. PREDNISOLONE [Concomitant]
     Dosage: 100 MILLIGRAM
     Route: 048
     Dates: start: 20111109, end: 20111114
  4. DEXAMETHASONE [Concomitant]
     Dosage: 40 MILLIGRAM
     Route: 048
     Dates: start: 20111107, end: 20111108
  5. BETOLVEX [Concomitant]
     Dosage: 1 MILLIGRAM
     Route: 048
     Dates: start: 20100104
  6. SODIUM POLYSTYRENE SULFONATE [Suspect]
     Dosage: 30 GRAM
     Route: 048
     Dates: start: 20111122, end: 20111126
  7. MAGNESIUM [Concomitant]
     Dosage: 1000 MILLIGRAM
     Route: 048
     Dates: start: 20110403
  8. LORAZEPAM [Concomitant]
     Dosage: .5 MICROMOLE
     Route: 048
     Dates: start: 20110531
  9. DEXAMETHASONE [Concomitant]
     Dosage: 40 MILLIGRAM
     Route: 048
     Dates: start: 20111121, end: 20111122
  10. ZOPICLONE [Concomitant]
     Dosage: 3.75 MILLIGRAM
     Dates: start: 20110614
  11. METHADONE HCL [Concomitant]
     Route: 048
     Dates: start: 20110331
  12. DEXAMETHASONE [Concomitant]
     Dosage: 40 MILLIGRAM
     Route: 048
     Dates: start: 20111031, end: 20111101
  13. PANTOPRAZOLE [Concomitant]
     Dosage: 40 MILLIGRAM
     Route: 048
     Dates: start: 20110402
  14. ALL OTHER THERAPEUTIC PRODUCTS [Concomitant]
     Dosage: 1 DOSAGE FORMS
     Route: 048
     Dates: start: 20110322
  15. ALL OTHER THERAPEUTIC PRODUCTS [Concomitant]
     Dates: start: 20111003, end: 20111010

REACTIONS (4)
  - HYPERCALCAEMIA [None]
  - HYPOKALAEMIA [None]
  - PNEUMONIA [None]
  - BLOOD CREATININE INCREASED [None]
